FAERS Safety Report 11727179 (Version 2)
Quarter: 2015Q4

REPORT INFORMATION
  Report Type: Report from Study
  Country: DE (occurrence: DE)
  Receive Date: 20151112
  Receipt Date: 20151202
  Transmission Date: 20160304
  Serious: Yes (Hospitalization)
  Sender: FDA-Public Use
  Company Number: DE-BIOGENIDEC-2015BI147663

PATIENT
  Age: 35 Year
  Sex: Male

DRUGS (4)
  1. TECFIDERA [Suspect]
     Active Substance: DIMETHYL FUMARATE
     Indication: MULTIPLE SCLEROSIS
     Route: 048
     Dates: start: 20140630
  2. IBUPROFEN. [Concomitant]
     Active Substance: IBUPROFEN
  3. PANTOZOLE [Concomitant]
     Active Substance: PANTOPRAZOLE SODIUM
  4. METAMIZOLE [Concomitant]
     Active Substance: METAMIZOLE

REACTIONS (7)
  - Joint injury [Recovered/Resolved with Sequelae]
  - Accident at work [Recovered/Resolved]
  - Hypoaesthesia [Unknown]
  - Haemorrhage [Unknown]
  - Hypoaesthesia oral [Not Recovered/Not Resolved]
  - Burning sensation [Not Recovered/Not Resolved]
  - Ligament rupture [Recovered/Resolved with Sequelae]

NARRATIVE: CASE EVENT DATE: 20150521
